FAERS Safety Report 15450296 (Version 6)
Quarter: 2019Q1

REPORT INFORMATION
  Report Type: Spontaneous
  Country: US (occurrence: US)
  Receive Date: 20181001
  Receipt Date: 20190116
  Transmission Date: 20190417
  Serious: No
  Sender: FDA-Public Use
  Company Number: US-PFIZER INC-2018390449

PATIENT
  Age: 82 Year
  Sex: Male
  Weight: 95.25 kg

DRUGS (5)
  1. LYRICA [Suspect]
     Active Substance: PREGABALIN
     Indication: NERVE INJURY
     Dosage: 75 MG, 2X/DAY [2 CAPSULES, A DAY]
     Route: 048
     Dates: start: 2018
  2. LYRICA [Suspect]
     Active Substance: PREGABALIN
     Indication: NEUROPATHY PERIPHERAL
     Dosage: 75 MG, 2X/DAY (1 CAPSULE BY MOUTH TWO TIMES DAILY)
     Route: 048
     Dates: start: 20181212
  3. HUMULIN NOS [Concomitant]
     Active Substance: INSULIN HUMAN
     Indication: DIABETES MELLITUS
     Dosage: 30 IU, 2X/DAY [30 UNITS IN MORNING, 30 UNITS AT NIGHT]
  4. LYRICA [Suspect]
     Active Substance: PREGABALIN
     Indication: PAIN
  5. LYRICA [Suspect]
     Active Substance: PREGABALIN
     Indication: PERIPHERAL COLDNESS
     Dosage: 75 MG, 1X/DAY

REACTIONS (5)
  - Therapeutic response unexpected [Unknown]
  - Blood glucose decreased [Unknown]
  - Body height decreased [Unknown]
  - Blood pressure decreased [Unknown]
  - Intentional product misuse [Unknown]
